FAERS Safety Report 10622664 (Version 2)
Quarter: 2015Q1

REPORT INFORMATION
  Report Type: Spontaneous
  Country: AT (occurrence: AT)
  Receive Date: 20141203
  Receipt Date: 20150305
  Transmission Date: 20150720
  Serious: Yes (Hospitalization, Other)
  Sender: FDA-Public Use
  Company Number: AT-PFIZER INC-2014327922

PATIENT
  Age: 63 Year
  Sex: Male

DRUGS (1)
  1. CAVERJECT [Suspect]
     Active Substance: ALPROSTADIL
     Dosage: 20 ?G, 1-2 X WEEKLY
     Dates: end: 201410

REACTIONS (20)
  - Pulmonary granuloma [Unknown]
  - Rash pruritic [Unknown]
  - Muscular weakness [Unknown]
  - Hyperhidrosis [Unknown]
  - Dysuria [Unknown]
  - Weight decreased [Unknown]
  - Thyroid neoplasm [Unknown]
  - Asthenia [Unknown]
  - Erythema [Unknown]
  - Rash [Unknown]
  - Flushing [Unknown]
  - Endocrine neoplasm [Unknown]
  - Skin burning sensation [Unknown]
  - Muscle spasms [Unknown]
  - Hair colour changes [Unknown]
  - Bronchitis [Unknown]
  - Muscle atrophy [Not Recovered/Not Resolved]
  - Hypoaesthesia [Unknown]
  - Hair growth abnormal [Unknown]
  - Tremor [Unknown]

NARRATIVE: CASE EVENT DATE: 201410
